FAERS Safety Report 8297977 (Version 4)
Quarter: 2013Q3

REPORT INFORMATION
  Report Type: Report from Study
  Country: US (occurrence: US)
  Receive Date: 20111125
  Receipt Date: 20130924
  Transmission Date: 20140515
  Serious: Yes (Other)
  Sender: FDA-Public Use
  Company Number: PHHY2011US40423

PATIENT
  Age: 4 Year
  Sex: Male

DRUGS (7)
  1. AFINITOR [Suspect]
     Indication: BRAIN NEOPLASM BENIGN
     Dosage: 2.5 MG, DAILY
     Route: 048
     Dates: start: 20110311
  2. AFINITOR [Suspect]
     Dosage: 5 MG
     Route: 048
  3. AFINITOR [Suspect]
     Dosage: 2.5 MG, DAILY
     Route: 048
  4. LYSINE [Concomitant]
     Dosage: UNK UKN, UNK
     Route: 065
  5. CARAFATE [Concomitant]
     Dosage: UNK UKN, UNK
     Route: 065
  6. MAGIC MOUTHWASH [Concomitant]
     Dosage: UNK UKN, UNK
     Route: 065
  7. VITAMINS [Concomitant]
     Dosage: UNK UKN, UNK
     Route: 065

REACTIONS (6)
  - Varicella [Recovered/Resolved]
  - Mouth ulceration [Recovered/Resolved]
  - Aphagia [Recovered/Resolved]
  - Diarrhoea [Not Recovered/Not Resolved]
  - Dehydration [Not Recovered/Not Resolved]
  - Oral pain [Not Recovered/Not Resolved]
